FAERS Safety Report 4945021-5 (Version None)
Quarter: 2006Q1

REPORT INFORMATION
  Report Type: 
  Country: None (occurrence: None)
  Receive Date: 20060117
  Receipt Date: 20050707
  Transmission Date: 20060701
  Serious: Yes (Hospitalization)
  Sender: FDA-Public Use
  Company Number: A03200502061

PATIENT
  Age: 67 Year
  Sex: Male
  Weight: 88.43 kg

DRUGS (6)
  1. PLAVIX [Suspect]
     Indication: MYOCARDIAL INFARCTION
     Dosage: 75 MG QD -ORAL
     Route: 048
     Dates: start: 20040901
  2. METOPROLOL SUCCINATE [Concomitant]
  3. ATORVASTATIN CALCIUM [Concomitant]
  4. LISINOPRIL [Concomitant]
  5. ACETYLSALICYLIC ACID SRT [Concomitant]
  6. GLYCERYL TRINITRATE [Concomitant]

REACTIONS (1)
  - MYOCARDIAL INFARCTION [None]
